FAERS Safety Report 7062352-6 (Version None)
Quarter: 2010Q4

REPORT INFORMATION
  Report Type: 
  Country: None (occurrence: None)
  Receive Date: 20101026
  Receipt Date: 20101012
  Transmission Date: 20110411
  Serious: Yes (Hospitalization)
  Sender: FDA-Public Use
  Company Number: PHHY2010MT67993

PATIENT
  Sex: Male

DRUGS (1)
  1. CATAFAST [Suspect]
     Indication: TOOTHACHE
     Dosage: 50 MG, TID
     Route: 048
     Dates: start: 20100901, end: 20100901

REACTIONS (3)
  - DRUG HYPERSENSITIVITY [None]
  - LOSS OF CONSCIOUSNESS [None]
  - PRURITUS [None]
